FAERS Safety Report 22611046 (Version 1)
Quarter: 2023Q2

REPORT INFORMATION
  Report Type: Spontaneous
  Country: US (occurrence: None)
  Receive Date: 20230615
  Receipt Date: 20230615
  Transmission Date: 20230721
  Serious: No
  Sender: FDA-Public Use
  Company Number: None

PATIENT
  Age: 80 Year
  Sex: Female
  Weight: 54.43 kg

DRUGS (16)
  1. IBRANCE [Suspect]
     Active Substance: PALBOCICLIB
     Indication: Breast cancer female
     Dosage: FREQUENCY : DAILY;?
     Route: 048
     Dates: start: 202207
  2. ARIMIDEX [Concomitant]
     Active Substance: ANASTROZOLE
  3. CALCIUM [Concomitant]
  4. VITAMIN D3 [Concomitant]
     Active Substance: CHOLECALCIFEROL
  5. FISH OIL [Concomitant]
  6. FUCOIDAN [Concomitant]
  7. IBUPROFEN [Concomitant]
     Active Substance: IBUPROFEN
  8. METHOTREXATE [Concomitant]
     Active Substance: METHOTREXATE
  9. MULTIVITAMIN [Concomitant]
  10. ORENCIA [Concomitant]
     Active Substance: ABATACEPT
  11. PREDNISONE [Concomitant]
     Active Substance: PREDNISONE
  12. PROLIA [Concomitant]
     Active Substance: DENOSUMAB
  13. CODEINE PHOSPHATE\PROMETHAZINE [Concomitant]
     Active Substance: CODEINE PHOSPHATE\PROMETHAZINE
  14. TAMOXIFEN [Concomitant]
  15. HERBALS\TURMERIC [Concomitant]
     Active Substance: HERBALS\TURMERIC
  16. VITAMIN C [Concomitant]
     Active Substance: ASCORBIC ACID

REACTIONS (1)
  - Arthralgia [None]
